FAERS Safety Report 10528100 (Version 1)
Quarter: 2014Q4

REPORT INFORMATION
  Report Type: Spontaneous
  Country: US (occurrence: None)
  Receive Date: 20141016
  Receipt Date: 20141016
  Transmission Date: 20150528
  Serious: Yes (Life-Threatening, Hospitalization)
  Sender: FDA-Public Use
  Company Number: None

PATIENT
  Age: 20 Year
  Sex: Female

DRUGS (2)
  1. IBUPROFEN 800 MG [Suspect]
     Active Substance: IBUPROFEN
     Indication: PAIN
     Route: 048
  2. ROBI AC (GUAIFENESIN + CODEINE) 100 MG/10 MG/5ML [Suspect]
     Active Substance: CODEINE\GUAIFENESIN
     Indication: COUGH
     Route: 048

REACTIONS (2)
  - Dyspnoea [None]
  - Pharyngeal oedema [None]

NARRATIVE: CASE EVENT DATE: 20140930
